FAERS Safety Report 4561720-1 (Version None)
Quarter: 2005Q1

REPORT INFORMATION
  Report Type: 
  Country: None (occurrence: None)
  Receive Date: 20050125
  Receipt Date: 20050112
  Transmission Date: 20050727
  Serious: Yes (Other)
  Sender: FDA-Public Use
  Company Number: 2005011987

PATIENT
  Age: 55 Year
  Sex: Female

DRUGS (3)
  1. PROVERA [Suspect]
     Indication: HORMONE REPLACEMENT THERAPY
     Dates: end: 19990101
  2. CONJUGATED ESTROGENS [Suspect]
     Indication: HORMONE REPLACEMENT THERAPY
     Dates: start: 19870101, end: 19990101
  3. PROVELLA 14 (ESTROGENS CONJUGATED, MEDROXYPROGESTERONE) [Suspect]
     Indication: HORMONE REPLACEMENT THERAPY
     Dates: start: 19990601, end: 20020701

REACTIONS (1)
  - BREAST CANCER FEMALE [None]
